FAERS Safety Report 10332367 (Version 6)
Quarter: 2014Q4

REPORT INFORMATION
  Report Type: Spontaneous
  Country: US (occurrence: US)
  Receive Date: 20140722
  Receipt Date: 20141119
  Transmission Date: 20150528
  Serious: No
  Sender: FDA-Public Use
  Company Number: US-PFIZER INC-2014199636

PATIENT
  Age: 54 Year
  Sex: Male
  Weight: 81.63 kg

DRUGS (6)
  1. VENLAFAXINE ER [Suspect]
     Active Substance: VENLAFAXINE HYDROCHLORIDE
     Indication: MAJOR DEPRESSION
     Dosage: 150 MG, 1X/DAY
     Route: 048
     Dates: start: 20140411, end: 201404
  2. VENLAFAXINE ER [Suspect]
     Active Substance: VENLAFAXINE HYDROCHLORIDE
     Dosage: 300 MG (BY TAKING TWO OF 150MG), 1X/DAY
     Route: 048
     Dates: start: 201404, end: 20140713
  3. BETHANECHOL [Concomitant]
     Active Substance: BETHANECHOL
     Dosage: UNK
  4. VENLAFAXINE ER [Suspect]
     Active Substance: VENLAFAXINE HYDROCHLORIDE
     Dosage: 150 MG, 1X/DAY
     Route: 048
     Dates: start: 20140714
  5. BABY ASPIRIN [Concomitant]
     Active Substance: ASPIRIN
     Dosage: UNK
  6. BUPROPION XL [Concomitant]
     Active Substance: BUPROPION
     Dosage: 150 MG, 3X/DAY
     Dates: start: 201202

REACTIONS (12)
  - Urticaria [Unknown]
  - Disturbance in attention [Unknown]
  - Pruritus [Recovered/Resolved]
  - Anxiety [Recovered/Resolved]
  - Incorrect dose administered [Unknown]
  - Irritability [Recovered/Resolved]
  - Fatigue [Recovered/Resolved]
  - Vision blurred [Recovered/Resolved]
  - Drug dispensing error [Unknown]
  - Hyperhidrosis [Unknown]
  - Confusional state [Recovered/Resolved]
  - Feeling abnormal [Unknown]

NARRATIVE: CASE EVENT DATE: 2014
